FAERS Safety Report 23589819 (Version 2)
Quarter: 2025Q2

REPORT INFORMATION
  Report Type: Report from Study
  Country: FR (occurrence: FR)
  Receive Date: 20240304
  Receipt Date: 20250426
  Transmission Date: 20250717
  Serious: Yes (Other)
  Sender: AUROBINDO
  Company Number: FR-CELLTRION HEALTHCARE HUNGARY KFT-2024FR002757

PATIENT
  Age: 78 Year
  Sex: Male

DRUGS (2)
  1. BENDAMUSTINE [Suspect]
     Active Substance: BENDAMUSTINE
     Indication: Follicular lymphoma stage I
     Route: 065
  2. RITUXIMAB [Suspect]
     Active Substance: RITUXIMAB
     Indication: Follicular lymphoma stage I
     Route: 065

REACTIONS (2)
  - Hypogammaglobulinaemia [Unknown]
  - Bronchitis [Unknown]
